FAERS Safety Report 23520576 (Version 1)
Quarter: 2024Q1

REPORT INFORMATION
  Report Type: Spontaneous
  Country: US (occurrence: US)
  Receive Date: 20240214
  Receipt Date: 20240214
  Transmission Date: 20240409
  Serious: Yes (Other)
  Sender: FDA-Public Use
  Company Number: US-BRISTOL-MYERS SQUIBB COMPANY-2024-023158

PATIENT
  Age: 80 Year
  Sex: Male

DRUGS (1)
  1. LENALIDOMIDE [Suspect]
     Active Substance: LENALIDOMIDE
     Indication: Plasma cell myeloma
     Dosage: TOME 1 CAPSULA POR VIA ORAL UNA VEZ AL DIA DURANTE 21 DIAS, DESPUES DESCANSE 7 DIAS
     Route: 048
     Dates: start: 20221227

REACTIONS (1)
  - White blood cell count decreased [Not Recovered/Not Resolved]
